FAERS Safety Report 15316149 (Version 1)
Quarter: 2018Q3

REPORT INFORMATION
  Report Type: Spontaneous
  Country: US (occurrence: US)
  Receive Date: 20180816
  Receipt Date: 20180816
  Transmission Date: 20181010
  Serious: No
  Sender: FDA-Public Use
  Company Number: None

PATIENT
  Age: 76 Year
  Sex: Male
  Weight: 78.02 kg

DRUGS (4)
  1. BLOOD PRESSURE [Concomitant]
  2. CALCIUM [Concomitant]
     Active Substance: CALCIUM
  3. NUOVAWHITE (HYDROGEN PEROXIDE) [Suspect]
     Active Substance: HYDROGEN PEROXIDE
     Indication: DENTAL COSMETIC PROCEDURE
     Dosage: ?          QUANTITY:4 DF DOSAGE FORM;?
     Route: 048
     Dates: start: 20180115, end: 20180115
  4. CHOLESTEROL MEDS [Concomitant]

REACTIONS (1)
  - Product colour issue [None]

NARRATIVE: CASE EVENT DATE: 20180815
